FAERS Safety Report 11617332 (Version 2)
Quarter: 2016Q1

REPORT INFORMATION
  Report Type: Spontaneous
  Country: US (occurrence: US)
  Receive Date: 20151009
  Receipt Date: 20160115
  Transmission Date: 20160525
  Serious: No
  Sender: FDA-Public Use
  Company Number: US-ASTRAZENECA-2015SE93808

PATIENT
  Sex: Female

DRUGS (1)
  1. SYMBICORT [Suspect]
     Active Substance: BUDESONIDE\FORMOTEROL FUMARATE DIHYDRATE
     Indication: CHRONIC OBSTRUCTIVE PULMONARY DISEASE
     Dosage: 160 /4.5 MCG, 1 PUFF TWO TIMES A DAY
     Route: 055
     Dates: start: 201505

REACTIONS (5)
  - Cough [Unknown]
  - Choking [Unknown]
  - Intentional device misuse [Unknown]
  - Off label use [Unknown]
  - Product quality issue [Unknown]
